FAERS Safety Report 7531541-6 (Version None)
Quarter: 2011Q2

REPORT INFORMATION
  Report Type: 
  Country: None (occurrence: None)
  Receive Date: 20110606
  Receipt Date: 20110606
  Transmission Date: 20111010
  Serious: Yes (Other)
  Sender: FDA-Public Use
  Company Number: None

PATIENT
  Age: 62 Year
  Sex: Female
  Weight: 78.9259 kg

DRUGS (1)
  1. TOPIRAMATE [Suspect]
     Indication: MIGRAINE
     Dosage: 75MG TWICE DAILY PO
     Route: 048

REACTIONS (8)
  - PARAESTHESIA [None]
  - COORDINATION ABNORMAL [None]
  - HYPOAESTHESIA [None]
  - CHEST PAIN [None]
  - MUSCLE SPASMS [None]
  - FATIGUE [None]
  - FALL [None]
  - BREAST PAIN [None]
